FAERS Safety Report 7242723-5 (Version None)
Quarter: 2011Q1

REPORT INFORMATION
  Report Type: 
  Country: None (occurrence: None)
  Receive Date: 20110125
  Receipt Date: 20110111
  Transmission Date: 20110831
  Serious: Yes (Disabling)
  Sender: FDA-Public Use
  Company Number: PHHY2010US42466

PATIENT
  Sex: Female
  Weight: 134 kg

DRUGS (10)
  1. CLONAZEPAM [Concomitant]
  2. VITAMIN D [Concomitant]
  3. ASCORBIC ACID [Concomitant]
  4. MULTI-VITAMINS [Concomitant]
  5. HYDROXYUREA [Concomitant]
     Indication: THROMBOCYTOSIS
     Dosage: 300 MG, QD
     Route: 048
  6. CALCIUM [Concomitant]
  7. LEXAPRO [Concomitant]
     Indication: ANXIETY
     Dosage: 10 MG DAILY
     Route: 048
  8. TEKTURNA [Suspect]
     Indication: HYPERTENSION
     Dosage: 150 MG, BID
     Route: 048
  9. CLONIDINE [Concomitant]
     Indication: HYPERTENSION
     Dosage: 10 MG, BID
     Route: 048
  10. ASPIRIN [Concomitant]

REACTIONS (3)
  - ANXIETY [None]
  - PSYCHOTIC DISORDER [None]
  - THROMBOCYTOSIS [None]
